FAERS Safety Report 4614194-6 (Version None)
Quarter: 2005Q1

REPORT INFORMATION
  Report Type: 
  Country: None (occurrence: None)
  Receive Date: 20050316
  Receipt Date: 20050302
  Transmission Date: 20050727
  Serious: Yes (Hospitalization)
  Sender: FDA-Public Use
  Company Number: 2005SE01007

PATIENT
  Age: 43 Year
  Sex: Female
  Weight: 84 kg

DRUGS (1)
  1. BLOPRESS [Suspect]
     Indication: ESSENTIAL HYPERTENSION
     Dosage: 4 MG QD PO
     Route: 048
     Dates: start: 20040729

REACTIONS (2)
  - ERYTHEMA ANNULARE [None]
  - FUNGAL SKIN INFECTION [None]
